FAERS Safety Report 25649614 (Version 1)
Quarter: 2025Q3

REPORT INFORMATION
  Report Type: Spontaneous
  Country: US (occurrence: None)
  Receive Date: 20250805
  Receipt Date: 20250805
  Transmission Date: 20251021
  Serious: Yes (Hospitalization, Other)
  Sender: FDA-CTU
  Company Number: None

PATIENT
  Age: 28 Year
  Sex: Male
  Weight: 81 kg

DRUGS (2)
  1. LAMOTRIGINE [Suspect]
     Active Substance: LAMOTRIGINE
     Indication: Affective disorder
     Dosage: FREQUENCY : DAILY;?
     Route: 048
     Dates: start: 20250604, end: 20250718
  2. ATOMOXETINE [Concomitant]
     Active Substance: ATOMOXETINE
     Dates: start: 20250703

REACTIONS (1)
  - Drug reaction with eosinophilia and systemic symptoms [None]

NARRATIVE: CASE EVENT DATE: 20250718
